FAERS Safety Report 7638364-8 (Version None)
Quarter: 2011Q3

REPORT INFORMATION
  Report Type: 
  Country: None (occurrence: None)
  Receive Date: 20110720
  Receipt Date: 20110714
  Transmission Date: 20111222
  Serious: Yes (Life-Threatening, Hospitalization)
  Sender: FDA-Public Use
  Company Number: BR-000273

PATIENT
  Sex: Male
  Weight: 22.8 kg

DRUGS (1)
  1. NAGLAZYME [Suspect]
     Indication: MUCOPOLYSACCHARIDOSIS VI
     Dosage: (20 MG 1X/WEEK INTRAVENOUS DRIP)
     Route: 041
     Dates: start: 20040709, end: 20091201

REACTIONS (3)
  - TRACHEOSTOMY [None]
  - SPASTIC PARAPLEGIA [None]
  - SPINAL CORD COMPRESSION [None]
